FAERS Safety Report 8301481-3 (Version None)
Quarter: 2012Q2

REPORT INFORMATION
  Report Type: 
  Country: None (occurrence: None)
  Receive Date: 20120420
  Receipt Date: 20120412
  Transmission Date: 20120825
  Serious: Yes (Life-Threatening, Hospitalization, Other)
  Sender: FDA-Public Use
  Company Number: PHHY2012CA031469

PATIENT
  Age: 78 Year
  Sex: Female

DRUGS (4)
  1. TOBI [Suspect]
     Indication: FEBRILE NEUTROPENIA
     Dosage: UNK
     Route: 042
     Dates: start: 20101104, end: 20101105
  2. VELCADE [Concomitant]
  3. LENALIDOMIDE [Suspect]
     Indication: MYELODYSPLASTIC SYNDROME
     Dosage: 25 MG, QD
     Route: 048
     Dates: start: 20101029
  4. ANCEF [Suspect]
     Dosage: UNK
     Dates: start: 20101104, end: 20101105

REACTIONS (15)
  - PYREXIA [None]
  - RASH MACULO-PAPULAR [None]
  - HYPOTENSION [None]
  - NEUROPATHY PERIPHERAL [None]
  - IMMUNODEFICIENCY [None]
  - PRURITUS [None]
  - LIP SWELLING [None]
  - DERMATITIS EXFOLIATIVE [None]
  - SWOLLEN TONGUE [None]
  - FEBRILE NEUTROPENIA [None]
  - NEUTROPENIA [None]
  - RASH GENERALISED [None]
  - FEELING HOT [None]
  - ANGIOEDEMA [None]
  - DERMATITIS BULLOUS [None]
